FAERS Safety Report 9382379 (Version 1)
Quarter: 2013Q3

REPORT INFORMATION
  Report Type: Spontaneous
  Country: CA (occurrence: CA)
  Receive Date: 20130703
  Receipt Date: 20130703
  Transmission Date: 20140515
  Serious: Yes (Other)
  Sender: FDA-Public Use
  Company Number: CA-BRISTOL-MYERS SQUIBB COMPANY-19051010

PATIENT
  Sex: Female

DRUGS (1)
  1. ABILIFY [Suspect]
     Indication: BIPOLAR DISORDER

REACTIONS (1)
  - Serotonin syndrome [Unknown]
